FAERS Safety Report 9198357 (Version 1)
Quarter: 2013Q1

REPORT INFORMATION
  Report Type: Spontaneous
  Country: US (occurrence: None)
  Receive Date: 20120709
  Receipt Date: 20120709
  Transmission Date: 20140127
  Serious: Yes (Other)
  Sender: FDA-Public Use
  Company Number: PHEH2012US006903

PATIENT
  Age: 60 Year
  Sex: Male

DRUGS (1)
  1. GLEEVEC (IMATINIB) [Suspect]
     Indication: SOFT TISSUE CANCER
     Route: 048

REACTIONS (2)
  - Gastrointestinal haemorrhage [None]
  - Abnormal faeces [None]
